FAERS Safety Report 9721050 (Version 1)
Quarter: 2013Q4

REPORT INFORMATION
  Report Type: Spontaneous
  Country: US (occurrence: US)
  Receive Date: 20131129
  Receipt Date: 20131129
  Transmission Date: 20140711
  Serious: No
  Sender: FDA-Public Use
  Company Number: US-PFIZER INC-2013336282

PATIENT
  Age: 49 Year
  Sex: Female
  Weight: 81.63 kg

DRUGS (1)
  1. ADVIL [Suspect]
     Indication: TOOTHACHE
     Dosage: 200 MG, AS NEEDED
     Route: 048
     Dates: start: 20131116

REACTIONS (3)
  - Wrong technique in drug usage process [Unknown]
  - Oral discomfort [Not Recovered/Not Resolved]
  - Drug ineffective [Unknown]
